FAERS Safety Report 4282073-2 (Version None)
Quarter: 2004Q1

REPORT INFORMATION
  Report Type: 
  Country: None (occurrence: None)
  Receive Date: 20040130
  Receipt Date: 20030121
  Transmission Date: 20041129
  Serious: Yes (Other)
  Sender: FDA-Public Use
  Company Number: US-BRISTOL-MYERS SQUIBB COMPANY-12163473

PATIENT
  Sex: Female

DRUGS (1)
  1. DESYREL [Suspect]
     Route: 048
     Dates: start: 20020220

REACTIONS (1)
  - DERMATITIS ALLERGIC [None]
